FAERS Safety Report 9900376 (Version 3)
Quarter: 2014Q1

REPORT INFORMATION
  Report Type: Spontaneous
  Country: SE (occurrence: SE)
  Receive Date: 20140216
  Receipt Date: 20140228
  Transmission Date: 20141002
  Serious: Yes (Hospitalization, Other)
  Sender: FDA-Public Use
  Company Number: SE-ROCHE-1345052

PATIENT
  Sex: Female
  Weight: 50 kg

DRUGS (5)
  1. ROACTEMRA [Suspect]
     Indication: RHEUMATOID ARTHRITIS
     Route: 042
     Dates: start: 20120616
  2. ROACTEMRA [Suspect]
     Route: 042
     Dates: start: 20130903
  3. ROACTEMRA [Suspect]
     Route: 042
     Dates: start: 20131001
  4. ROACTEMRA [Suspect]
     Route: 042
     Dates: start: 20131029
  5. ROACTEMRA [Suspect]
     Dosage: STRENGTH 20 MG/ML
     Route: 042
     Dates: end: 20131210

REACTIONS (2)
  - Lung cancer metastatic [Unknown]
  - Lung infiltration [Unknown]
